FAERS Safety Report 25532623 (Version 1)
Quarter: 2025Q3

REPORT INFORMATION
  Report Type: Spontaneous
  Country: CH (occurrence: CH)
  Receive Date: 20250709
  Receipt Date: 20250709
  Transmission Date: 20251020
  Serious: Yes (Hospitalization)
  Sender: ORGANON
  Company Number: None

PATIENT
  Age: 83 Year
  Sex: Male

DRUGS (14)
  1. EZETIMIBE\SIMVASTATIN [Interacting]
     Active Substance: EZETIMIBE\SIMVASTATIN
     Dosage: 10 MILLIGRAM, QD
     Dates: end: 20250523
  2. PREDNISONE [Interacting]
     Active Substance: PREDNISONE
     Indication: Myalgia
     Dosage: FOR ABOUT 3 WEEKS
     Dates: start: 202412, end: 202501
  3. PREDNISONE [Interacting]
     Active Substance: PREDNISONE
     Dosage: FOR ABOUT 3 WEEKS
     Dates: start: 202503
  4. FIRMAGON [Interacting]
     Active Substance: DEGARELIX ACETATE
     Indication: Prostate cancer
     Dosage: 240 MILLIGRAM, QD
     Route: 058
     Dates: start: 20250325, end: 20250325
  5. FIRMAGON [Interacting]
     Active Substance: DEGARELIX ACETATE
     Dosage: 80 MILLIGRAM, QD
     Route: 058
     Dates: start: 20250402, end: 20250402
  6. FIRMAGON [Interacting]
     Active Substance: DEGARELIX ACETATE
     Dosage: 80 MILLIGRAM, QD
     Route: 058
     Dates: start: 20250520, end: 20250520
  7. ABIRATERONE [Interacting]
     Active Substance: ABIRATERONE
     Indication: Prostate cancer
     Dosage: 1000 MILLIGRAM, QD
     Dates: start: 20250521, end: 20250523
  8. DAPAGLIFLOZIN PROPANEDIOL\METFORMIN HYDROCHLORIDE [Concomitant]
     Active Substance: DAPAGLIFLOZIN PROPANEDIOL\METFORMIN HYDROCHLORIDE
     Dosage: 1000MG/5MG; FOR 10 YEARS
  9. INSULIN DEGLUDEC [Concomitant]
     Active Substance: INSULIN DEGLUDEC
  10. LIRAGLUTIDE [Concomitant]
     Active Substance: LIRAGLUTIDE
  11. INSULIN ASPART [Concomitant]
     Active Substance: INSULIN ASPART
  12. VALSARTAN [Concomitant]
     Active Substance: VALSARTAN
     Dosage: FOR 2-3 DAYS
  13. SOLIFENACIN [Concomitant]
     Active Substance: SOLIFENACIN
     Dosage: 10 MILLIGRAM, QD
     Dates: start: 202501
  14. ASPIRIN [Concomitant]
     Active Substance: ASPIRIN
     Dosage: FOR 20 YEARS

REACTIONS (8)
  - Hyporeflexia [Recovered/Resolved]
  - Myalgia [Recovered/Resolved]
  - Hypotonia [Recovered/Resolved]
  - Peripheral sensorimotor neuropathy [Unknown]
  - Dizziness [Recovered/Resolved]
  - Hypotension [Recovered/Resolved]
  - Headache [Recovered/Resolved]
  - Drug interaction [Recovered/Resolved]

NARRATIVE: CASE EVENT DATE: 20250521
